FAERS Safety Report 18752998 (Version 5)
Quarter: 2021Q1

REPORT INFORMATION
  Report Type: Report from Study
  Country: CA (occurrence: CA)
  Receive Date: 20210118
  Receipt Date: 20210301
  Transmission Date: 20210419
  Serious: Yes (Hospitalization, Other)
  Sender: FDA-Public Use
  Company Number: CA-GLAXOSMITHKLINE-CA2021AMR007368

PATIENT
  Age: 58 Year
  Sex: Male

DRUGS (2)
  1. MEPOLIZUMAB [Suspect]
     Active Substance: MEPOLIZUMAB
     Dosage: 100 MG, MONTHLY
     Dates: start: 20190812
  2. MEPOLIZUMAB [Suspect]
     Active Substance: MEPOLIZUMAB
     Indication: ASTHMA
     Dosage: 100 MG, Z (MONTHLY)
     Route: 042
     Dates: start: 20190812

REACTIONS (6)
  - Oxygen saturation decreased [Unknown]
  - Cough [Unknown]
  - COVID-19 pneumonia [Unknown]
  - Dyspnoea [Unknown]
  - Coronavirus infection [Unknown]
  - Quarantine [Unknown]

NARRATIVE: CASE EVENT DATE: 20201228
